FAERS Safety Report 12186045 (Version 6)
Quarter: 2017Q2

REPORT INFORMATION
  Report Type: Spontaneous
  Country: US (occurrence: US)
  Receive Date: 20160317
  Receipt Date: 20170427
  Transmission Date: 20170830
  Serious: Yes (Other)
  Sender: FDA-Public Use
  Company Number: US-AUROBINDO-AUR-APU-2016-03270

PATIENT
  Age: 87 Year
  Sex: Female

DRUGS (1)
  1. LEVOFLOXACIN TABLETS 500MG [Suspect]
     Active Substance: LEVOFLOXACIN
     Indication: PNEUMONIA
     Dosage: 500 MG, UNK
     Route: 065
     Dates: start: 20160118, end: 20160127

REACTIONS (8)
  - Constipation [Not Recovered/Not Resolved]
  - Neuropathy peripheral [Not Recovered/Not Resolved]
  - Syncope [Not Recovered/Not Resolved]
  - Vision blurred [Not Recovered/Not Resolved]
  - Asthenia [Not Recovered/Not Resolved]
  - Tendonitis [Not Recovered/Not Resolved]
  - Mental impairment [Not Recovered/Not Resolved]
  - Dizziness [Not Recovered/Not Resolved]

NARRATIVE: CASE EVENT DATE: 20160121
